FAERS Safety Report 4851897-2 (Version None)
Quarter: 2005Q4

REPORT INFORMATION
  Report Type: 
  Country: None (occurrence: None)
  Receive Date: 20051213
  Receipt Date: 20051205
  Transmission Date: 20060501
  Serious: Yes (Other)
  Sender: FDA-Public Use
  Company Number: GB-AVENTIS-200520794GDDC

PATIENT
  Age: 59 Year
  Sex: Female
  Weight: 82 kg

DRUGS (1)
  1. ARAVA [Suspect]
     Indication: RHEUMATOID ARTHRITIS
     Route: 048
     Dates: start: 20051111, end: 20051124

REACTIONS (2)
  - ANGINA PECTORIS [None]
  - CONDITION AGGRAVATED [None]
